FAERS Safety Report 5780695-0 (Version None)
Quarter: 2008Q2

REPORT INFORMATION
  Report Type: 
  Country: None (occurrence: None)
  Receive Date: 20080620
  Receipt Date: 20080319
  Transmission Date: 20081010
  Serious: Yes (Other)
  Sender: FDA-Public Use
  Company Number: JP-PFIZER INC-2008020719

PATIENT
  Age: 60 Year
  Sex: Male

DRUGS (3)
  1. MIGLITOL TABLET [Suspect]
     Indication: TYPE 2 DIABETES MELLITUS
     Dosage: DAILY DOSE:150MG
     Route: 048
  2. MELBIN [Suspect]
     Indication: TYPE 2 DIABETES MELLITUS
     Dosage: DAILY DOSE:500MG
     Route: 048
     Dates: end: 20071027
  3. AMARYL [Concomitant]
     Indication: TYPE 2 DIABETES MELLITUS
     Dosage: DAILY DOSE:2MG

REACTIONS (1)
  - LIVER FUNCTION TEST ABNORMAL [None]
